FAERS Safety Report 7177872-3 (Version None)
Quarter: 2010Q4

REPORT INFORMATION
  Report Type: 
  Country: None (occurrence: None)
  Receive Date: 20101220
  Receipt Date: 20100218
  Transmission Date: 20110411
  Serious: Yes (Hospitalization, Other)
  Sender: FDA-Public Use
  Company Number: IN-BAXTER-2010BH004289

PATIENT
  Age: 80 Year
  Sex: Female

DRUGS (1)
  1. LACTATED RINGER'S [Suspect]
     Indication: BLOOD ELECTROLYTES DECREASED
     Route: 042
     Dates: start: 20100216, end: 20100217

REACTIONS (1)
  - CHILLS [None]
